FAERS Safety Report 20415202 (Version 1)
Quarter: 2022Q1

REPORT INFORMATION
  Report Type: Spontaneous
  Country: US (occurrence: US)
  Receive Date: 20220202
  Receipt Date: 20220202
  Transmission Date: 20220423
  Serious: No
  Sender: FDA-Public Use
  Company Number: US-GW PHARMA-202201USGW00402

PATIENT
  Sex: Female

DRUGS (2)
  1. EPIDIOLEX [Suspect]
     Active Substance: CANNABIDIOL
     Indication: Petit mal epilepsy
     Dosage: UNK
     Route: 048
     Dates: start: 20211011
  2. EPIDIOLEX [Suspect]
     Active Substance: CANNABIDIOL
     Indication: Epilepsy
     Dosage: 350 MILLIGRAM, BID
     Route: 048

REACTIONS (3)
  - Insomnia [Not Recovered/Not Resolved]
  - Somnolence [Unknown]
  - Product use in unapproved indication [Unknown]
